FAERS Safety Report 9470339 (Version 1)
Quarter: 2013Q3

REPORT INFORMATION
  Report Type: Spontaneous
  Country: US (occurrence: US)
  Receive Date: 20130822
  Receipt Date: 20130822
  Transmission Date: 20140515
  Serious: No
  Sender: FDA-Public Use
  Company Number: US-SANOFI-AVENTIS-2012SA089899

PATIENT
  Age: 68 Year
  Sex: Female

DRUGS (4)
  1. MULTAQ [Suspect]
     Indication: ATRIAL FIBRILLATION
     Route: 048
     Dates: start: 201209
  2. CARDIZEM [Suspect]
     Indication: ATRIAL FIBRILLATION
     Route: 065
     Dates: start: 201209
  3. SYNTHROID [Concomitant]
     Dosage: FROM JUNE 2011 TO AUG 2012 HER SYNTHROID DOSE WAS INCREASED FROM 200UG TO 300UG.
  4. ASPIRIN [Concomitant]

REACTIONS (7)
  - Arrhythmia [Unknown]
  - Heart rate decreased [Unknown]
  - Depressed mood [Not Recovered/Not Resolved]
  - Personality change [Not Recovered/Not Resolved]
  - Constipation [Not Recovered/Not Resolved]
  - Amnesia [Not Recovered/Not Resolved]
  - Fatigue [Not Recovered/Not Resolved]
